FAERS Safety Report 14292711 (Version 1)
Quarter: 2017Q4

REPORT INFORMATION
  Report Type: Spontaneous
  Country: IL (occurrence: IL)
  Receive Date: 20171215
  Receipt Date: 20171215
  Transmission Date: 20180321
  Serious: Yes (Death)
  Sender: FDA-Public Use
  Company Number: IL-SA-2017SA251251

PATIENT
  Sex: Male

DRUGS (1)
  1. LANTUS [Suspect]
     Active Substance: INSULIN GLARGINE
     Indication: DIABETES MELLITUS
     Route: 058
     Dates: start: 2017

REACTIONS (4)
  - Cardiac disorder [Fatal]
  - Musculoskeletal pain [Fatal]
  - Chest pain [Fatal]
  - Blood glucose decreased [Fatal]

NARRATIVE: CASE EVENT DATE: 20171204
